FAERS Safety Report 7038467-5 (Version None)
Quarter: 2010Q4

REPORT INFORMATION
  Report Type: 
  Country: None (occurrence: None)
  Receive Date: 20101011
  Receipt Date: 20100407
  Transmission Date: 20110411
  Serious: Yes (Other)
  Sender: FDA-Public Use
  Company Number: US-PFIZER INC-2010023601

PATIENT
  Sex: Female
  Weight: 67.12 kg

DRUGS (3)
  1. GABAPENTIN [Suspect]
     Indication: MIGRAINE
     Dosage: 100 MG, 1X/DAY
     Route: 048
     Dates: start: 20090101
  2. GABAPENTIN [Suspect]
     Dosage: 100 MG, 2X/DAY
     Route: 048
  3. GABAPENTIN [Suspect]
     Dosage: 300 MG, 2X/DAY
     Route: 048
     Dates: end: 20100103

REACTIONS (1)
  - AMNESIA [None]
